FAERS Safety Report 10155017 (Version 1)
Quarter: 2014Q2

REPORT INFORMATION
  Report Type: Spontaneous
  Country: US (occurrence: None)
  Receive Date: 20140505
  Receipt Date: 20140505
  Transmission Date: 20141212
  Serious: Yes (Other)
  Sender: FDA-Public Use
  Company Number: None

PATIENT
  Age: 76 Year
  Sex: Male
  Weight: 80.74 kg

DRUGS (1)
  1. WAL-ITIN D SULFATE 120MG LORATINE 5 MG [Suspect]
     Indication: MULTIPLE ALLERGIES
     Dates: start: 20140416, end: 20140504

REACTIONS (4)
  - Heart rate irregular [None]
  - Heart rate increased [None]
  - Nervousness [None]
  - Insomnia [None]
